FAERS Safety Report 25854172 (Version 1)
Quarter: 2025Q3

REPORT INFORMATION
  Report Type: Spontaneous
  Country: US (occurrence: US)
  Receive Date: 20250926
  Receipt Date: 20250926
  Transmission Date: 20251020
  Serious: No
  Sender: PFIZER
  Company Number: US-PFIZER INC-202300322136

PATIENT
  Age: 82 Year
  Sex: Male

DRUGS (2)
  1. PAXLOVID [Suspect]
     Active Substance: NIRMATRELVIR\RITONAVIR
     Dosage: UNK UNK, 2X/DAY (FOR 3 DAYS)
  2. PAXLOVID [Suspect]
     Active Substance: NIRMATRELVIR\RITONAVIR
     Dosage: 6 DF, 2X/DAY (6 PILLS IN THE MORNING, 6 PILLS IN THE EVENING)
     Dates: start: 20231008, end: 20231008

REACTIONS (4)
  - Product prescribing error [Unknown]
  - Incorrect dose administered [Unknown]
  - Overdose [Unknown]
  - Off label use [Unknown]

NARRATIVE: CASE EVENT DATE: 20230101
